FAERS Safety Report 12552789 (Version 3)
Quarter: 2016Q3

REPORT INFORMATION
  Report Type: Report from Study
  Country: US (occurrence: US)
  Receive Date: 20160713
  Receipt Date: 20160808
  Transmission Date: 20161109
  Serious: Yes (Hospitalization, Other)
  Sender: FDA-Public Use
  Company Number: US-ALEXION PHARMACEUTICALS INC-A201605080

PATIENT
  Age: 17 Year
  Sex: Male

DRUGS (2)
  1. SOLIRIS [Suspect]
     Active Substance: ECULIZUMAB
     Dosage: 900 MG, UNK
     Route: 042
  2. SOLIRIS [Suspect]
     Active Substance: ECULIZUMAB
     Indication: HAEMOLYTIC URAEMIC SYNDROME
     Dosage: UNK
     Route: 042

REACTIONS (17)
  - Respiratory failure [Unknown]
  - Hypotension [Unknown]
  - Haemolysis [Unknown]
  - Renal failure [Unknown]
  - Thrombocytopenia [Unknown]
  - Hypergammaglobulinaemia benign monoclonal [Unknown]
  - Pulmonary hypertension [Unknown]
  - Renal impairment [Unknown]
  - Drug ineffective [Unknown]
  - Platelet count decreased [Unknown]
  - Total complement activity decreased [Unknown]
  - Cytomegalovirus infection [Unknown]
  - Infection [Unknown]
  - Complement factor C3 increased [Unknown]
  - Hyperkalaemia [Unknown]
  - Blood lactate dehydrogenase increased [Unknown]
  - Bronchial haemorrhage [Unknown]

NARRATIVE: CASE EVENT DATE: 20160719
